FAERS Safety Report 13270063 (Version 2)
Quarter: 2017Q1

REPORT INFORMATION
  Report Type: Report from Study
  Country: None (occurrence: US)
  Receive Date: 20170224
  Receipt Date: 20170227
  Transmission Date: 20170428
  Serious: Yes (Hospitalization)
  Sender: FDA-Public Use
  Company Number: US-ABBVIE-17K-163-1881711-00

PATIENT
  Age: 45 Year
  Sex: Female

DRUGS (1)
  1. HUMIRA [Suspect]
     Active Substance: ADALIMUMAB
     Indication: PSORIASIS
     Route: 058
     Dates: start: 2016

REACTIONS (11)
  - Cholecystitis infective [Recovered/Resolved]
  - Device dislocation [Recovered/Resolved]
  - Ear infection [Recovered/Resolved]
  - Skin discolouration [Recovered/Resolved]
  - Intra-abdominal fluid collection [Unknown]
  - Contusion [Recovered/Resolved]
  - Erythema [Recovered/Resolved]
  - Pharyngitis [Recovered/Resolved]
  - Musculoskeletal discomfort [Not Recovered/Not Resolved]
  - Dry skin [Not Recovered/Not Resolved]
  - Skin exfoliation [Recovered/Resolved]

NARRATIVE: CASE EVENT DATE: 201611
